FAERS Safety Report 6866371-1 (Version None)
Quarter: 2010Q3

REPORT INFORMATION
  Report Type: 
  Country: None (occurrence: None)
  Receive Date: 20100722
  Receipt Date: 20100714
  Transmission Date: 20110219
  Serious: Yes (Other)
  Sender: FDA-Public Use
  Company Number: JP-ABBOTT-10P-087-0657423-00

PATIENT
  Age: 77 Year
  Sex: Male

DRUGS (1)
  1. CLARITH TABLETS 200MG [Suspect]
     Indication: PRODUCT USED FOR UNKNOWN INDICATION
     Dates: start: 20090901, end: 20091001

REACTIONS (1)
  - LIVER DISORDER [None]
